FAERS Safety Report 6691682-2 (Version None)
Quarter: 2010Q2

REPORT INFORMATION
  Report Type: 
  Country: None (occurrence: None)
  Receive Date: 20100422
  Receipt Date: 20090611
  Transmission Date: 20101027
  Serious: No
  Sender: FDA-Public Use
  Company Number: US-ASTRAZENECA-2009UW14970

PATIENT
  Age: 87 Year
  Sex: Female
  Weight: 78.5 kg

DRUGS (5)
  1. TOPROL-XL [Suspect]
     Route: 048
     Dates: start: 20090604
  2. COZAAR [Concomitant]
     Indication: HYPERTENSION
  3. LASIX [Concomitant]
     Indication: HYPERTENSION
  4. PROTONIX [Concomitant]
     Indication: DYSPEPSIA
  5. ZOCOR [Concomitant]
     Indication: BLOOD CHOLESTEROL

REACTIONS (3)
  - BLOOD URINE PRESENT [None]
  - FATIGUE [None]
  - WRONG DRUG ADMINISTERED [None]
